FAERS Safety Report 25070889 (Version 1)
Quarter: 2025Q1

REPORT INFORMATION
  Report Type: Spontaneous
  Country: US (occurrence: US)
  Receive Date: 20250312
  Receipt Date: 20250312
  Transmission Date: 20250408
  Serious: Yes (Other)
  Sender: BEXIMCO PHARMACEUTICALS
  Company Number: US-BEXIMCO-2025BEX00016

PATIENT
  Age: 24 Year
  Sex: Female

DRUGS (2)
  1. FLECAINIDE ACETATE [Suspect]
     Active Substance: FLECAINIDE ACETATE
     Indication: Ventricular tachycardia
     Dosage: 50 MG, 2X/DAY
  2. FLECAINIDE ACETATE [Suspect]
     Active Substance: FLECAINIDE ACETATE
     Dosage: 200 MG, 2X/DAY

REACTIONS (1)
  - Cardioversion [Unknown]
